FAERS Safety Report 6417940-4 (Version None)
Quarter: 2009Q4

REPORT INFORMATION
  Report Type: 
  Country: None (occurrence: None)
  Receive Date: 20091026
  Receipt Date: 20091013
  Transmission Date: 20100525
  Serious: Yes (Other)
  Sender: FDA-Public Use
  Company Number: ADR37842009

PATIENT
  Age: 78 Year

DRUGS (1)
  1. SIMVASTATIN [Suspect]
     Indication: LIPIDS INCREASED
     Dosage: 20 MG ORAL
     Route: 048
     Dates: start: 20050101

REACTIONS (3)
  - ALOPECIA [None]
  - DENTAL DISCOMFORT [None]
  - TOOTH DISORDER [None]
